FAERS Safety Report 5271554-0 (Version None)
Quarter: 2007Q1

REPORT INFORMATION
  Report Type: 
  Country: None (occurrence: None)
  Receive Date: 20070315
  Receipt Date: 20070305
  Transmission Date: 20070707
  Serious: Yes (Other)
  Sender: FDA-Public Use
  Company Number: CHNY2007DE00592

PATIENT
  Age: 46 Year
  Sex: Male
  Weight: 102 kg

DRUGS (1)
  1. NICOTINE [Suspect]
     Indication: SMOKING CESSATION THERAPY
     Dosage: 21 MG, QD, TRANSDERMAL
     Route: 062
     Dates: start: 20061223, end: 20070110

REACTIONS (10)
  - APPLICATION SITE ERYTHEMA [None]
  - APPLICATION SITE PAIN [None]
  - APPLICATION SITE PRURITUS [None]
  - APPLICATION SITE REACTION [None]
  - APPLICATION SITE SWELLING [None]
  - BLISTER [None]
  - RASH PUSTULAR [None]
  - SKIN IRRITATION [None]
  - URTICARIA [None]
  - WOUND SECRETION [None]
